FAERS Safety Report 5571285-3 (Version None)
Quarter: 2007Q4

REPORT INFORMATION
  Report Type: 
  Country: None (occurrence: None)
  Receive Date: 20071221
  Receipt Date: 20070522
  Transmission Date: 20080405
  Serious: No
  Sender: FDA-Public Use
  Company Number: A0649065A

PATIENT
  Age: 57 Year
  Sex: Female

DRUGS (1)
  1. FLUTICASONE PROPIONATE [Suspect]
     Indication: MULTIPLE ALLERGIES
     Dosage: 2PUFF PER DAY
     Route: 045
     Dates: start: 20070425

REACTIONS (2)
  - AGEUSIA [None]
  - PRODUCTIVE COUGH [None]
